FAERS Safety Report 6098415-1 (Version None)
Quarter: 2009Q1

REPORT INFORMATION
  Report Type: 
  Country: None (occurrence: None)
  Receive Date: 20090302
  Receipt Date: 20090218
  Transmission Date: 20090719
  Serious: Yes (Hospitalization)
  Sender: FDA-Public Use
  Company Number: JP-AMGEN-US291233

PATIENT
  Sex: Female

DRUGS (8)
  1. ENBREL [Suspect]
     Indication: RHEUMATOID ARTHRITIS
     Route: 058
     Dates: start: 20070919, end: 20071105
  2. PREDONINE [Suspect]
     Indication: RHEUMATOID ARTHRITIS
     Route: 048
     Dates: start: 20070819, end: 20071116
  3. PREDNISOLONE [Suspect]
     Indication: RHEUMATOID ARTHRITIS
     Route: 048
     Dates: end: 20071116
  4. LENDORMIN [Concomitant]
     Indication: INSOMNIA
     Route: 065
  5. THEO-DUR [Concomitant]
     Indication: ASTHMA
     Route: 065
  6. HOKUNALIN [Concomitant]
     Indication: ASTHMA
     Route: 065
  7. BLOPRESS [Concomitant]
     Indication: HYPERTENSION
     Route: 065
  8. OMEPRAL [Concomitant]
     Indication: GASTRIC ULCER
     Route: 065

REACTIONS (1)
  - PNEUMOCYSTIS JIROVECI PNEUMONIA [None]
